FAERS Safety Report 12828785 (Version 1)
Quarter: 2016Q4

REPORT INFORMATION
  Report Type: Spontaneous
  Country: US (occurrence: US)
  Receive Date: 20161007
  Receipt Date: 20161007
  Transmission Date: 20170207
  Serious: No
  Sender: FDA-Public Use
  Company Number: US-SA-2015SA191002

PATIENT
  Age: 48 Year
  Sex: Male

DRUGS (3)
  1. BUPROPION. [Concomitant]
     Active Substance: BUPROPION
  2. DAPSONE. [Concomitant]
     Active Substance: DAPSONE
     Indication: COELIAC DISEASE
     Dosage: ONE TO TWO TIMES A WEEK
  3. AUBAGIO [Suspect]
     Active Substance: TERIFLUNOMIDE
     Indication: MULTIPLE SCLEROSIS
     Route: 048
     Dates: start: 20151111

REACTIONS (1)
  - Memory impairment [Unknown]
